FAERS Safety Report 18469579 (Version 1)
Quarter: 2020Q4

REPORT INFORMATION
  Report Type: Report from Study
  Country: JP (occurrence: JP)
  Receive Date: 20201105
  Receipt Date: 20201105
  Transmission Date: 20210114
  Serious: Yes (Other)
  Sender: FDA-Public Use
  Company Number: JP-GILEAD-2020-0491580

PATIENT
  Age: 69 Year
  Sex: Female

DRUGS (4)
  1. TENOFOVIR ALAFENAMIDE FUMARATE [Concomitant]
     Active Substance: TENOFOVIR ALAFENAMIDE FUMARATE
     Indication: HEPATITIS B
     Dosage: UNK
  2. TENOFOVIR ALAFENAMIDE FUMARATE [Concomitant]
     Active Substance: TENOFOVIR ALAFENAMIDE FUMARATE
     Dosage: UNK
  3. ENTECAVIR HYDRATE [Concomitant]
     Indication: HEPATITIS B
     Dosage: UNK
  4. TENOFOVIR DISOPROXIL FUMARATE. [Suspect]
     Active Substance: TENOFOVIR DISOPROXIL FUMARATE
     Indication: HEPATITIS B
     Route: 048

REACTIONS (5)
  - Hepatitis B DNA increased [Unknown]
  - Pathogen resistance [Unknown]
  - Viral mutation identified [Unknown]
  - Hepatitis B DNA assay positive [Not Recovered/Not Resolved]
  - Drug resistance [Unknown]
